FAERS Safety Report 19775808 (Version 1)
Quarter: 2021Q3

REPORT INFORMATION
  Report Type: Spontaneous
  Country: US (occurrence: US)
  Receive Date: 20210901
  Receipt Date: 20210901
  Transmission Date: 20211014
  Serious: No
  Sender: FDA-Public Use
  Company Number: US-ELI_LILLY_AND_COMPANY-US202109000076

PATIENT
  Sex: Female

DRUGS (1)
  1. FORTEO [Suspect]
     Active Substance: TERIPARATIDE
     Indication: PRODUCT USED FOR UNKNOWN INDICATION
     Dosage: UNK UNK, UNKNOWN
     Route: 065

REACTIONS (7)
  - Bone disorder [Unknown]
  - Nausea [Unknown]
  - Lower limb fracture [Recovered/Resolved]
  - Hypersensitivity [Unknown]
  - Tibia fracture [Unknown]
  - Malaise [Unknown]
  - Abdominal pain upper [Unknown]
